FAERS Safety Report 10561769 (Version 3)
Quarter: 2014Q4

REPORT INFORMATION
  Report Type: Report from Study
  Country: US (occurrence: US)
  Receive Date: 20141103
  Receipt Date: 20141204
  Transmission Date: 20150529
  Serious: Yes (Hospitalization, Other)
  Sender: FDA-Public Use
  Company Number: US-009507513-1411USA000023

PATIENT
  Age: 57 Year

DRUGS (4)
  1. VELCADE [Suspect]
     Active Substance: BORTEZOMIB
     Indication: PLASMA CELL MYELOMA
     Dosage: 3.2 MG, VIAL, ON DAYS 1,4,8,11 Q21 DAYS, LABEL STRENGTH: 4MG
     Route: 042
     Dates: start: 20100204, end: 20140617
  2. VELCADE [Suspect]
     Active Substance: BORTEZOMIB
     Dosage: 3.5 MG, VIAL, ON DAYS 1,4,8,11, LABEL STRENGTH: 3.5MG
     Route: 042
     Dates: start: 20100518, end: 20100730
  3. DEXAMETHASONE. [Suspect]
     Active Substance: DEXAMETHASONE
     Dosage: 40 MG, QW
     Route: 048
     Dates: start: 20100518, end: 20100827
  4. DEXAMETHASONE. [Suspect]
     Active Substance: DEXAMETHASONE
     Indication: PLASMA CELL MYELOMA
     Dosage: 40 MG, QW
     Route: 048
     Dates: start: 20100204, end: 20140617

REACTIONS (2)
  - Respiratory distress [Unknown]
  - Pulmonary toxicity [Unknown]

NARRATIVE: CASE EVENT DATE: 20100612
